FAERS Safety Report 26178226 (Version 1)
Quarter: 2025Q4

REPORT INFORMATION
  Report Type: Spontaneous
  Country: JP (occurrence: JP)
  Receive Date: 20251219
  Receipt Date: 20251219
  Transmission Date: 20260118
  Serious: Yes (Hospitalization, Other)
  Sender: MICRO LABS LIMITED
  Company Number: JP-MICRO LABS LIMITED-ML2025-06634

PATIENT
  Age: 22 Year
  Sex: Female
  Weight: 41 kg

DRUGS (4)
  1. MEFENAMIC ACID [Suspect]
     Active Substance: MEFENAMIC ACID
     Indication: Product used for unknown indication
     Dosage: SHE INTENTIONALLY INGESTED THE FOLLOWING MEDICATIONS PRESCRIBED FOR HER MOTHER: 10 TABLETS OF 250 MG
  2. IBUPROFEN [Suspect]
     Active Substance: IBUPROFEN
     Indication: Product used for unknown indication
     Dosage: ONE TABLET OF 100 MG IBUPROFEN (2.5 MG/KG)
  3. LOXOPROFEN [Suspect]
     Active Substance: LOXOPROFEN
     Indication: Product used for unknown indication
     Dosage: 12 TABLETS OF 60 MG OF LOXOPROFEN (18 MG/KG)
  4. ACETAMINOPHEN [Suspect]
     Active Substance: ACETAMINOPHEN
     Indication: Product used for unknown indication
     Dosage: 14 TABLETS OF 200 MG OF ACETAMINOPHEN (70 MG/KG)

REACTIONS (7)
  - Neurotoxicity [Recovered/Resolved]
  - Lactic acidosis [Recovered/Resolved]
  - Toxicity to various agents [Recovered/Resolved]
  - Acute kidney injury [Recovered/Resolved]
  - Seizure [Recovered/Resolved]
  - Overdose [Unknown]
  - Intentional product misuse [Unknown]
